FAERS Safety Report 12615485 (Version 1)
Quarter: 2016Q3

REPORT INFORMATION
  Report Type: Spontaneous
  Country: US (occurrence: US)
  Receive Date: 20160802
  Receipt Date: 20160802
  Transmission Date: 20161109
  Serious: Yes (Other)
  Sender: FDA-Public Use
  Company Number: US-BAYER-2016-149135

PATIENT
  Sex: Female

DRUGS (1)
  1. MIRENA [Suspect]
     Active Substance: LEVONORGESTREL
     Dosage: 20 MCG/24HR, CONT
     Route: 015
     Dates: start: 20101215, end: 20130307

REACTIONS (3)
  - Bacterial vaginosis [None]
  - Urinary tract infection [None]
  - Uterine perforation [None]

NARRATIVE: CASE EVENT DATE: 20130215
